FAERS Safety Report 19236843 (Version 2)
Quarter: 2021Q3

REPORT INFORMATION
  Report Type: Spontaneous
  Country: JP (occurrence: JP)
  Receive Date: 20210510
  Receipt Date: 20210809
  Transmission Date: 20211014
  Serious: Yes (Other)
  Sender: FDA-Public Use
  Company Number: JP-GLAXOSMITHKLINE-JP2020260865

PATIENT
  Age: 6 Decade
  Sex: Female

DRUGS (3)
  1. ZEJULA [Suspect]
     Active Substance: NIRAPARIB
     Dosage: 100 MILLIGRAM
     Route: 048
  2. ZEJULA [Suspect]
     Active Substance: NIRAPARIB
     Dosage: 200 MILLIGRAM
     Route: 048
     Dates: start: 20201223, end: 20210216
  3. ZEJULA [Suspect]
     Active Substance: NIRAPARIB
     Indication: OVARIAN CANCER RECURRENT
     Dosage: 200 MILLIGRAM
     Route: 048
     Dates: start: 20201124, end: 20201221

REACTIONS (7)
  - Constipation [Unknown]
  - Anaemia [Recovered/Resolved]
  - Nausea [Unknown]
  - Renal impairment [Unknown]
  - Tachycardia [Recovering/Resolving]
  - Gastrooesophageal reflux disease [Unknown]
  - Cough [Recovering/Resolving]
